FAERS Safety Report 19872606 (Version 1)
Quarter: 2021Q3

REPORT INFORMATION
  Report Type: Spontaneous
  Country: US (occurrence: US)
  Receive Date: 20210922
  Receipt Date: 20210922
  Transmission Date: 20211014
  Serious: Yes (Life-Threatening, Hospitalization)
  Sender: FDA-Public Use
  Company Number: US-ROCHE-2916397

PATIENT
  Age: 34 Year
  Sex: Female
  Weight: 108.2 kg

DRUGS (6)
  1. CEFEPIME [Concomitant]
     Active Substance: CEFEPIME HYDROCHLORIDE
     Route: 065
     Dates: start: 20210912, end: 20210917
  2. VANCOMYCIN [Concomitant]
     Active Substance: VANCOMYCIN
     Route: 065
     Dates: start: 20210912, end: 20210917
  3. DEXAMETHASONE. [Concomitant]
     Active Substance: DEXAMETHASONE
     Route: 065
     Dates: start: 20210903, end: 20210913
  4. ACTEMRA [Suspect]
     Active Substance: TOCILIZUMAB
     Indication: COVID-19
     Route: 042
     Dates: start: 20210903, end: 20210903
  5. ESMOLOL [Concomitant]
     Active Substance: ESMOLOL HYDROCHLORIDE
     Route: 065
     Dates: start: 20210916
  6. CIPROFLOXACIN. [Concomitant]
     Active Substance: CIPROFLOXACIN
     Route: 065
     Dates: start: 20210917, end: 20210917

REACTIONS (8)
  - Tachycardia [Unknown]
  - Off label use [Unknown]
  - Cardiovascular disorder [Unknown]
  - COVID-19 pneumonia [Unknown]
  - Acute respiratory failure [Unknown]
  - Cardiac arrest [Unknown]
  - Acute myocardial infarction [Unknown]
  - Bradycardia [Unknown]
